FAERS Safety Report 16427154 (Version 1)
Quarter: 2019Q3

REPORT INFORMATION
  Report Type: Spontaneous
  Country: US (occurrence: US)
  Receive Date: 20190612
  Receipt Date: 20190612
  Transmission Date: 20191004
  Serious: Yes (Disabling)
  Sender: FDA-Public Use
  Company Number: None

PATIENT
  Age: 68 Year
  Sex: Male
  Weight: 99 kg

DRUGS (15)
  1. WELLBUTRIN XL [Concomitant]
     Active Substance: BUPROPION HYDROCHLORIDE
  2. PROBIOTICS [Concomitant]
     Active Substance: PROBIOTICS NOS
  3. OMEGA-3 ACIDS [Concomitant]
     Active Substance: OMEGA-3 FATTY ACIDS
  4. XANAX [Concomitant]
     Active Substance: ALPRAZOLAM
  5. DIOVAN [Concomitant]
     Active Substance: VALSARTAN
  6. TRAZODONE [Concomitant]
     Active Substance: TRAZODONE HYDROCHLORIDE
  7. GENVOYA [Concomitant]
     Active Substance: COBICISTAT\ELVITEGRAVIR\EMTRICITABINE\TENOFOVIR ALAFENAMIDE FUMARATE
  8. QSYMIA [Concomitant]
     Active Substance: PHENTERMINE HYDROCHLORIDE\TOPIRAMATE
  9. AUIGMENTIN [Concomitant]
  10. SYNTHROID [Concomitant]
     Active Substance: LEVOTHYROXINE SODIUM
  11. MODAFINIL. [Concomitant]
     Active Substance: MODAFINIL
  12. ANDROGEL [Concomitant]
     Active Substance: TESTOSTERONE
  13. CENTRUM SILVER [Concomitant]
     Active Substance: MINERALS\VITAMINS
  14. TRINTELLIX [Suspect]
     Active Substance: VORTIOXETINE HYDROBROMIDE
     Indication: DEPRESSION
     Dosage: ?          QUANTITY:1 CAPSULE(S);?
     Route: 067
     Dates: start: 20190610, end: 20190611
  15. POTASSIUM [Concomitant]
     Active Substance: POTASSIUM

REACTIONS (6)
  - Dizziness [None]
  - Disturbance in attention [None]
  - Fall [None]
  - Lethargy [None]
  - Nightmare [None]
  - Muscular weakness [None]

NARRATIVE: CASE EVENT DATE: 20190610
